FAERS Safety Report 10648885 (Version 1)
Quarter: 2014Q4

REPORT INFORMATION
  Report Type: Spontaneous
  Country: KR (occurrence: None)
  Receive Date: 20141210
  Receipt Date: 20141210
  Transmission Date: 20150529
  Serious: No
  Sender: FDA-Public Use
  Company Number: KR2014GSK026187

PATIENT
  Age: 37 Year
  Sex: Male

DRUGS (2)
  1. ADEFOVIR (ADEFOVIR DIPIVOXIL) UNKNOWN [Suspect]
     Active Substance: ADEFOVIR DIPIVOXIL
     Indication: CHRONIC HEPATITIS B
  2. LAMIVUDINE (LAMIVUDINE) [Suspect]
     Active Substance: LAMIVUDINE
     Indication: CHRONIC HEPATITIS B

REACTIONS (2)
  - Viral mutation identified [None]
  - Drug resistance [None]
